FAERS Safety Report 7075293-5 (Version None)
Quarter: 2010Q4

REPORT INFORMATION
  Report Type: 
  Country: None (occurrence: None)
  Receive Date: 20101030
  Receipt Date: 20100726
  Transmission Date: 20110411
  Serious: No
  Sender: FDA-Public Use
  Company Number: US-WYE-H16628810

PATIENT
  Age: 80 Year
  Sex: Male
  Weight: 60.84 kg

DRUGS (2)
  1. ADVIL PM [Suspect]
     Indication: INSOMNIA
     Dosage: 2 CAPLETS ONCE
     Route: 048
     Dates: start: 20100726, end: 20100726
  2. TOPROL-XL [Concomitant]

REACTIONS (1)
  - SOMNOLENCE [None]
